FAERS Safety Report 8164493-9 (Version None)
Quarter: 2012Q1

REPORT INFORMATION
  Report Type: 
  Country: None (occurrence: None)
  Receive Date: 20120224
  Receipt Date: 20120220
  Transmission Date: 20120608
  Serious: Yes (Life-Threatening)
  Sender: FDA-Public Use
  Company Number: FR-ASTRAZENECA-2012SE11836

PATIENT
  Age: 18733 Day
  Sex: Male

DRUGS (7)
  1. CRESTOR [Concomitant]
     Route: 048
  2. ATENOLOL [Concomitant]
     Route: 048
  3. AUGMENTIN '125' [Suspect]
     Indication: ANTIBIOTIC PROPHYLAXIS
     Route: 042
     Dates: start: 20110719, end: 20110719
  4. SUFENTANIL CITRATE [Suspect]
     Indication: ANAESTHESIA
     Dosage: ONCE/SINGLE ADMINISTRATION
     Route: 042
     Dates: start: 20110719, end: 20110719
  5. ASPIRIN [Concomitant]
  6. PROPOFOL [Suspect]
     Indication: ANAESTHESIA
     Dosage: ONCE/SINGLE ADMINISTRATION
     Route: 042
     Dates: start: 20110719, end: 20110719
  7. XYLOCAINE [Suspect]
     Indication: ANAESTHESIA
     Dosage: ONCE/SINGLE ADMINISTRATION
     Route: 042
     Dates: start: 20110719, end: 20110719

REACTIONS (1)
  - ANAPHYLACTIC SHOCK [None]
